FAERS Safety Report 26166111 (Version 1)
Quarter: 2025Q4

REPORT INFORMATION
  Report Type: Spontaneous
  Country: AU (occurrence: AU)
  Receive Date: 20251216
  Receipt Date: 20251216
  Transmission Date: 20260117
  Serious: Yes (Other)
  Sender: BAUSCH AND LOMB
  Company Number: AU-BAUSCHBL-2025BNL033600

PATIENT
  Sex: Female

DRUGS (4)
  1. PREDNISOLONE SODIUM PHOSPHATE [Suspect]
     Active Substance: PREDNISOLONE SODIUM PHOSPHATE
     Indication: Product used for unknown indication
  2. HYDROXYCHLOROQUINE SULFATE [Suspect]
     Active Substance: HYDROXYCHLOROQUINE SULFATE
     Indication: Product used for unknown indication
  3. METHYLPREDNISOLONE HEMISUCCINATE [Suspect]
     Active Substance: METHYLPREDNISOLONE HEMISUCCINATE
     Indication: Product used for unknown indication
  4. MYCOPHENOLATE MOFETIL [Suspect]
     Active Substance: MYCOPHENOLATE MOFETIL
     Indication: Product used for unknown indication

REACTIONS (9)
  - Haematochezia [Unknown]
  - Cytomegalovirus colitis [Unknown]
  - Cytomegalovirus infection [Unknown]
  - Diarrhoea [Unknown]
  - Escherichia urinary tract infection [Unknown]
  - Malaise [Unknown]
  - Mucosal inflammation [Unknown]
  - Mucosal ulceration [Unknown]
  - Pyrexia [Unknown]
